FAERS Safety Report 18746123 (Version 2)
Quarter: 2021Q1

REPORT INFORMATION
  Report Type: Spontaneous
  Country: PT (occurrence: PT)
  Receive Date: 20210115
  Receipt Date: 20210226
  Transmission Date: 20210419
  Serious: Yes (Other)
  Sender: FDA-Public Use
  Company Number: PT-TEVA-2021-PT-1868788

PATIENT
  Age: 72 Year
  Sex: Female

DRUGS (1)
  1. CINQAERO 10 MG/ML [Suspect]
     Active Substance: RESLIZUMAB
     Indication: ASTHMA
     Dosage: 275 MG, SO WE USE 100 MG AND 25 MG RESLIZUMAB AMPOULES
     Route: 042
     Dates: start: 202008

REACTIONS (2)
  - Bronchospasm [Recovered/Resolved]
  - Cough [Recovered/Resolved]

NARRATIVE: CASE EVENT DATE: 2020
